FAERS Safety Report 6693020-8 (Version None)
Quarter: 2010Q2

REPORT INFORMATION
  Report Type: 
  Country: None (occurrence: None)
  Receive Date: 20100422
  Receipt Date: 20090528
  Transmission Date: 20101027
  Serious: Yes (Hospitalization)
  Sender: FDA-Public Use
  Company Number: NL-JNJFOC-20090506890

PATIENT
  Age: 28 Year
  Sex: Male

DRUGS (10)
  1. RISPERDAL CONSTA [Suspect]
     Indication: PSYCHOTIC DISORDER
     Route: 030
  2. SEROQUEL XR [Suspect]
     Indication: PSYCHOTIC DISORDER
  3. SEROQUEL XR [Suspect]
  4. SEROQUEL XR [Suspect]
  5. TRUXAL [Suspect]
     Indication: PSYCHOTIC DISORDER
  6. TRUXAL [Suspect]
  7. TRUXAL [Suspect]
  8. ZOLOFT [Concomitant]
  9. ZOLOFT [Concomitant]
  10. ANTAGEL [Concomitant]

REACTIONS (2)
  - DEPRESSION [None]
  - SUICIDAL IDEATION [None]
